FAERS Safety Report 9405925 (Version 3)
Quarter: 2013Q3

REPORT INFORMATION
  Report Type: Spontaneous
  Country: US (occurrence: US)
  Receive Date: 20130717
  Receipt Date: 20130821
  Transmission Date: 20140515
  Serious: Yes (Hospitalization)
  Sender: FDA-Public Use
  Company Number: US-GLAXOSMITHKLINE-A1033750A

PATIENT
  Age: 5 Year
  Sex: Male

DRUGS (1)
  1. FLOLAN [Suspect]
     Indication: PULMONARY ARTERIAL HYPERTENSION
     Dosage: 134NGKM CONTINUOUS
     Route: 065
     Dates: start: 20080730

REACTIONS (3)
  - Infusion site infection [Unknown]
  - Device related infection [Unknown]
  - Central venous catheterisation [Unknown]
